FAERS Safety Report 12671037 (Version 1)
Quarter: 2016Q3

REPORT INFORMATION
  Report Type: Report from Study
  Country: US (occurrence: US)
  Receive Date: 20160822
  Receipt Date: 20160822
  Transmission Date: 20161109
  Serious: Yes (Other)
  Sender: FDA-Public Use
  Company Number: US-CIPLA LTD.-2016US17196

PATIENT

DRUGS (3)
  1. IRINOTECAN [Suspect]
     Active Substance: IRINOTECAN
     Indication: NEUROBLASTOMA
     Dosage: 20 MG/M2, PER DOSE TO MAXIMUM DOSE OF 40 MG  OVER 1 HOUR ON DAYS 0 TO 4 AND 7 TO 11
     Route: 042
  2. VINCRISTINE [Interacting]
     Active Substance: VINCRISTINE
     Indication: NEUROBLASTOMA
     Dosage: 1.5 MG/M2,PER DOSE TO MAXIMUM DOSE OF 2 MG ON DAY 0 AND 7
     Route: 040
  3. 131I-METAIODOBENZYLGUANIDINE [Interacting]
     Active Substance: IOBENGUANE I-131
     Indication: NEUROBLASTOMA
     Dosage: 15 MCI/KG, OVER 90 TO 120 MINUTES ON DAY 1
     Route: 042

REACTIONS (2)
  - Drug interaction [Unknown]
  - Diarrhoea [Unknown]
